FAERS Safety Report 24463313 (Version 1)
Quarter: 2024Q4

REPORT INFORMATION
  Report Type: Report from Study
  Country: US (occurrence: US)
  Receive Date: 20241018
  Receipt Date: 20241018
  Transmission Date: 20250115
  Serious: No
  Sender: ROCHE
  Company Number: US-ROCHE-3302821

PATIENT
  Age: 71 Year
  Sex: Female

DRUGS (2)
  1. XOLAIR [Suspect]
     Active Substance: OMALIZUMAB
     Indication: Urticaria
     Dosage: 150 MG/ML, SYRINGE, DATE OF SERVICE: 31/JAN/2023, 17/JAN/2023, 28/DEC/2022, 14/DEC/2022, 13/JUL/2023
     Route: 058
  2. ROFECOXIB [Concomitant]
     Active Substance: ROFECOXIB

REACTIONS (2)
  - No adverse event [Unknown]
  - Off label use [Unknown]
